FAERS Safety Report 14513177 (Version 1)
Quarter: 2018Q1

REPORT INFORMATION
  Report Type: Spontaneous
  Country: US (occurrence: US)
  Receive Date: 20180208
  Receipt Date: 20180208
  Transmission Date: 20180509
  Serious: Yes (Other)
  Sender: FDA-Public Use
  Company Number: None

PATIENT
  Age: 55 Year
  Sex: Female

DRUGS (8)
  1. ZOLEDRONIC ACID. [Concomitant]
     Active Substance: ZOLEDRONIC ACID
  2. DULCOLAX NOS [Concomitant]
     Active Substance: BISACODYL OR DOCUSATE SODIUM
  3. MULTIVITAMINS [Concomitant]
     Active Substance: VITAMINS
  4. OXYCODONE [Suspect]
     Active Substance: OXYCODONE
  5. CAPECITABINE. [Suspect]
     Active Substance: CAPECITABINE
     Indication: BREAST CANCER
     Route: 048
     Dates: start: 20170928, end: 20180208
  6. ATIVAN [Concomitant]
     Active Substance: LORAZEPAM
  7. FASLODEX [Concomitant]
     Active Substance: FULVESTRANT
  8. PROCHLORERAZINE [Concomitant]

REACTIONS (1)
  - Disease progression [None]
